FAERS Safety Report 7376481-0 (Version None)
Quarter: 2011Q1

REPORT INFORMATION
  Report Type: 
  Country: None (occurrence: None)
  Receive Date: 20110325
  Receipt Date: 20110315
  Transmission Date: 20110831
  Serious: Yes (Death, Other)
  Sender: FDA-Public Use
  Company Number: US-BAXTER-2011BH005534

PATIENT
  Age: 91 Year
  Sex: Male

DRUGS (1)
  1. DIANEAL [Suspect]
     Indication: PERITONEAL DIALYSIS
     Route: 033
     Dates: start: 20060516, end: 20110304

REACTIONS (4)
  - SEPSIS [None]
  - PERITONITIS [None]
  - FUNGAL INFECTION [None]
  - DEVICE RELATED INFECTION [None]
